FAERS Safety Report 17621189 (Version 1)
Quarter: 2020Q2

REPORT INFORMATION
  Report Type: Spontaneous
  Country: CH (occurrence: CH)
  Receive Date: 20200403
  Receipt Date: 20200403
  Transmission Date: 20200713
  Serious: Yes (Other)
  Sender: FDA-Public Use
  Company Number: CH-TEVA-2020-CH-1218737

PATIENT
  Age: 6 Decade
  Sex: Female

DRUGS (2)
  1. LETROZOLE. [Suspect]
     Active Substance: LETROZOLE
     Indication: OVARIAN CANCER STAGE III
     Route: 065
     Dates: start: 201802
  2. PALBOCICLIB [Suspect]
     Active Substance: PALBOCICLIB
     Indication: OVARIAN CANCER STAGE III
     Dosage: FOR 3 WEEKS, THEN A WEEK OFF
     Route: 065
     Dates: start: 201802

REACTIONS (1)
  - Neutropenia [Recovered/Resolved]
